FAERS Safety Report 17684394 (Version 1)
Quarter: 2020Q2

REPORT INFORMATION
  Report Type: Spontaneous
  Country: SE (occurrence: SE)
  Receive Date: 20200420
  Receipt Date: 20200420
  Transmission Date: 20200714
  Serious: Yes (Hospitalization)
  Sender: FDA-Public Use
  Company Number: SE-MYLANLABS-2020M1038538

PATIENT
  Age: 51 Year
  Sex: Male

DRUGS (11)
  1. HALDOL [Suspect]
     Active Substance: HALOPERIDOL
     Indication: PRODUCT USED FOR UNKNOWN INDICATION
     Dosage: UNK
  2. KALCIPOS-D [Concomitant]
     Active Substance: CALCIUM CARBONATE\CHOLECALCIFEROL
     Dosage: UNK
  3. EPORATIO [Concomitant]
     Active Substance: ERYTHROPOIETIN
  4. OLANZAPINE. [Suspect]
     Active Substance: OLANZAPINE
     Indication: PRODUCT USED FOR UNKNOWN INDICATION
     Dosage: UNK
  5. AMLODIPINE [Concomitant]
     Active Substance: AMLODIPINE BESYLATE
  6. RESONIUM [Concomitant]
     Active Substance: SODIUM POLYSTYRENE SULFONATE
  7. PALIPERIDONE. [Suspect]
     Active Substance: PALIPERIDONE
     Indication: PRODUCT USED FOR UNKNOWN INDICATION
     Dosage: UNK
  8. NATRIUMBIKARBONAT [Concomitant]
     Active Substance: SODIUM BICARBONATE
  9. LEVAXIN [Concomitant]
     Active Substance: LEVOTHYROXINE SODIUM
  10. CISORDINOL                         /00876703/ [Suspect]
     Active Substance: ZUCLOPENTHIXOL
     Indication: PRODUCT USED FOR UNKNOWN INDICATION
     Dosage: UNK
  11. LANTUS [Concomitant]
     Active Substance: INSULIN GLARGINE

REACTIONS (1)
  - Hypothermia [Unknown]

NARRATIVE: CASE EVENT DATE: 202002
